FAERS Safety Report 16524220 (Version 2)
Quarter: 2019Q3

REPORT INFORMATION
  Report Type: Spontaneous
  Country: US (occurrence: US)
  Receive Date: 20190703
  Receipt Date: 20190801
  Transmission Date: 20191004
  Serious: Yes (Hospitalization)
  Sender: FDA-Public Use
  Company Number: US-JNJFOC-20190630478

PATIENT
  Age: 35 Year
  Sex: Male

DRUGS (1)
  1. INVEGA TRINZA [Suspect]
     Active Substance: PALIPERIDONE PALMITATE
     Indication: SCHIZOPHRENIA
     Dosage: LAST DOSE WAS INJECTED ON 29-MAY-2019
     Route: 030
     Dates: start: 201511

REACTIONS (2)
  - Drug ineffective [Unknown]
  - Mania [Unknown]

NARRATIVE: CASE EVENT DATE: 20190610
